FAERS Safety Report 8531912 (Version 3)
Quarter: 2013Q1

REPORT INFORMATION
  Report Type: Spontaneous
  Country: US (occurrence: US)
  Receive Date: 20120426
  Receipt Date: 20130110
  Transmission Date: 20140127
  Serious: Yes (Other)
  Sender: FDA-Public Use
  Company Number: US-ROCHE-1062632

PATIENT
  Age: 34 Year
  Sex: Male
  Weight: 88.53 kg

DRUGS (1)
  1. ACCUTANE [Suspect]
     Indication: ACNE CYSTIC
     Route: 065
     Dates: start: 19850329, end: 19850729

REACTIONS (6)
  - Inflammatory bowel disease [Unknown]
  - Depression [Unknown]
  - Diverticulitis [Unknown]
  - Large intestine polyp [Unknown]
  - Dry skin [Unknown]
  - Blood triglycerides increased [Unknown]
